FAERS Safety Report 4745584-9 (Version None)
Quarter: 2005Q3

REPORT INFORMATION
  Report Type: 
  Country: None (occurrence: None)
  Receive Date: 20050815
  Receipt Date: 20050730
  Transmission Date: 20060218
  Serious: Yes (Hospitalization, Other)
  Sender: FDA-Public Use
  Company Number: 2005091110

PATIENT
  Age: 64 Year
  Sex: Male
  Weight: 72.5755 kg

DRUGS (6)
  1. BEXTRA [Suspect]
     Indication: ARTHRITIS
     Dosage: 20 MG (20 MG, 1 IN 1 D), ORAL
     Route: 048
     Dates: start: 20030901
  2. BEXTRA [Suspect]
     Indication: DYSPEPSIA
     Dosage: 20 MG (20 MG, 1 IN 1 D), ORAL
     Route: 048
     Dates: start: 20030901
  3. BEXTRA [Suspect]
     Indication: OSTEOARTHRITIS
     Dosage: 20 MG (20 MG, 1 IN 1 D), ORAL
     Route: 048
     Dates: start: 20030901
  4. ANTIHYPERTENSIVES (ANTIHYPERTENSIVES) [Concomitant]
  5. LIPITOR [Concomitant]
  6. ACETYLSALICYLIC ACID SRT [Concomitant]

REACTIONS (19)
  - AMNESIA [None]
  - ANXIETY [None]
  - ATHEROSCLEROSIS [None]
  - BLINDNESS [None]
  - BLOOD GLUCOSE INCREASED [None]
  - BLOOD PRESSURE SYSTOLIC INCREASED [None]
  - CEREBROVASCULAR ACCIDENT [None]
  - CHEST DISCOMFORT [None]
  - DISCOMFORT [None]
  - GASTROINTESTINAL NEOPLASM [None]
  - GASTROOESOPHAGEAL REFLUX DISEASE [None]
  - HEADACHE [None]
  - HYPOAESTHESIA [None]
  - NERVOUSNESS [None]
  - PARAESTHESIA [None]
  - SPEECH DISORDER [None]
  - TRANSIENT ISCHAEMIC ATTACK [None]
  - TREMOR [None]
  - VISION BLURRED [None]
